FAERS Safety Report 9125796 (Version 1)
Quarter: 2013Q1

REPORT INFORMATION
  Report Type: Spontaneous
  Country: US (occurrence: US)
  Receive Date: 20130227
  Receipt Date: 20130227
  Transmission Date: 20140127
  Serious: No
  Sender: FDA-Public Use
  Company Number: US-PFIZER INC-2013071171

PATIENT
  Sex: 0

DRUGS (3)
  1. GABAPENTIN [Suspect]
     Dosage: UNK
  2. FLEXERIL [Suspect]
     Dosage: UNK
  3. CYCLOBENZAPRINE HYDROCHLORIDE [Suspect]
     Dosage: UNK

REACTIONS (2)
  - Abdominal pain upper [Unknown]
  - Flatulence [Unknown]
